FAERS Safety Report 4504981-7 (Version None)
Quarter: 2004Q4

REPORT INFORMATION
  Report Type: 
  Country: None (occurrence: None)
  Receive Date: 20041015
  Receipt Date: 20031112
  Transmission Date: 20050328
  Serious: Yes (Other)
  Sender: FDA-Public Use
  Company Number: 2003118176

PATIENT
  Age: 50 Year
  Sex: Female
  Weight: 72.5755 kg

DRUGS (1)
  1. NEURONTIN [Suspect]
     Indication: CONVULSION

REACTIONS (4)
  - FACIAL PALSY [None]
  - FEELING ABNORMAL [None]
  - PAIN [None]
  - STOMACH DISCOMFORT [None]
